FAERS Safety Report 7842273-9 (Version None)
Quarter: 2011Q4

REPORT INFORMATION
  Report Type: 
  Country: None (occurrence: None)
  Receive Date: 20111025
  Receipt Date: 20111014
  Transmission Date: 20120403
  Serious: Yes (Hospitalization)
  Sender: FDA-Public Use
  Company Number: JP-JNJFOC-20111003491

PATIENT
  Sex: Male
  Weight: 63 kg

DRUGS (9)
  1. REMICADE [Suspect]
     Route: 042
     Dates: start: 20100107
  2. REMICADE [Suspect]
     Route: 042
     Dates: start: 20091203
  3. REMICADE [Suspect]
     Indication: RHEUMATOID ARTHRITIS
     Route: 042
     Dates: start: 20100304
  4. GRANDAXIN [Concomitant]
     Indication: AUTONOMIC NERVOUS SYSTEM IMBALANCE
     Route: 048
  5. GRANDAXIN [Concomitant]
     Route: 048
  6. REMICADE [Suspect]
     Route: 042
     Dates: start: 20091117
  7. METHOTREXATE [Suspect]
     Indication: RHEUMATOID ARTHRITIS
     Route: 048
     Dates: start: 20081127
  8. ZANTAC [Concomitant]
     Indication: GASTRITIS
     Route: 048
  9. FOLIC ACID [Concomitant]
     Indication: FOLATE DEFICIENCY
     Route: 048

REACTIONS (1)
  - PNEUMOCYSTIS JIROVECI PNEUMONIA [None]
